FAERS Safety Report 7973876-9 (Version None)
Quarter: 2011Q4

REPORT INFORMATION
  Report Type: 
  Country: None (occurrence: None)
  Receive Date: 20111201
  Receipt Date: 20111115
  Transmission Date: 20120403
  Serious: Yes (Other)
  Sender: FDA-Public Use
  Company Number: 2011SP054031

PATIENT
  Sex: Female

DRUGS (1)
  1. BETAMETHASONE [Suspect]
     Indication: EAR DISORDER

REACTIONS (2)
  - EAR HAEMORRHAGE [None]
  - TYMPANIC MEMBRANE PERFORATION [None]
